FAERS Safety Report 19655361 (Version 2)
Quarter: 2021Q3

REPORT INFORMATION
  Report Type: Other
  Country: US (occurrence: US)
  Receive Date: 20210804
  Receipt Date: 20210826
  Transmission Date: 20211014
  Serious: Yes (Other)
  Sender: FDA-Public Use
  Company Number: US-ROCHE-2459437

PATIENT
  Age: 64 Year
  Sex: Male
  Weight: 86.26 kg

DRUGS (10)
  1. ESBRIET [Suspect]
     Active Substance: PIRFENIDONE
     Indication: IDIOPATHIC PULMONARY FIBROSIS
     Dosage: TAKE 3 CAPSULE(S) BY MOUTH 3 TIMES A DAY;
     Route: 048
     Dates: start: 20190802
  2. FUROSEMIDE. [Concomitant]
     Active Substance: FUROSEMIDE
     Indication: OEDEMA
     Dates: end: 20190821
  3. PREDNISONE. [Concomitant]
     Active Substance: PREDNISONE
     Route: 048
  4. OMEPRAZOLE. [Concomitant]
     Active Substance: OMEPRAZOLE
     Route: 048
  5. ESBRIET [Suspect]
     Active Substance: PIRFENIDONE
     Route: 048
     Dates: start: 20190828
  6. LOSARTAN. [Concomitant]
     Active Substance: LOSARTAN
     Route: 048
  7. HYDROCHLOROTHIAZIDE. [Concomitant]
     Active Substance: HYDROCHLOROTHIAZIDE
  8. ASA [Concomitant]
     Active Substance: ASPIRIN
     Route: 048
     Dates: start: 20190508
  9. ESBRIET [Suspect]
     Active Substance: PIRFENIDONE
     Dosage: 3 CAPSULE(S) BY MOUTH 3 TIMES A DAY
     Route: 048
  10. ESBRIET [Suspect]
     Active Substance: PIRFENIDONE
     Route: 048
     Dates: start: 201909, end: 201909

REACTIONS (15)
  - Liver disorder [Unknown]
  - Hepatitis [Unknown]
  - Urine analysis abnormal [Unknown]
  - Blood count abnormal [Unknown]
  - Headache [Unknown]
  - Cold sweat [Recovered/Resolved]
  - Nausea [Recovered/Resolved]
  - Nephritis [Unknown]
  - Treatment noncompliance [Unknown]
  - Respiratory failure [Unknown]
  - Chromaturia [Unknown]
  - Illness [Unknown]
  - Blood alkaline phosphatase increased [Recovered/Resolved]
  - Headache [Recovered/Resolved]
  - Alcoholic liver disease [Unknown]

NARRATIVE: CASE EVENT DATE: 201909
